FAERS Safety Report 5017919-3 (Version None)
Quarter: 2006Q2

REPORT INFORMATION
  Report Type: 
  Country: None (occurrence: None)
  Receive Date: 20060605
  Receipt Date: 20060525
  Transmission Date: 20061013
  Serious: Yes (Hospitalization)
  Sender: FDA-Public Use
  Company Number: GB-AVENTIS-200612977EU

PATIENT
  Sex: Female

DRUGS (3)
  1. FUROSEMIDE [Suspect]
     Indication: DIURETIC THERAPY
     Dosage: DOSE: UNKNOWN DOSE
  2. FUROSEMIDE [Suspect]
     Dosage: DOSE: UNKNOWN DOSE
  3. LAXATIVES [Concomitant]

REACTIONS (2)
  - INTENTIONAL DRUG MISUSE [None]
  - RENAL FAILURE [None]
